FAERS Safety Report 21365990 (Version 1)
Quarter: 2022Q3

REPORT INFORMATION
  Report Type: Spontaneous
  Country: FR (occurrence: FR)
  Receive Date: 20220922
  Receipt Date: 20220922
  Transmission Date: 20221026
  Serious: Yes (Other)
  Sender: FDA-Public Use
  Company Number: None

PATIENT
  Age: 42 Year
  Sex: Male
  Weight: 70 kg

DRUGS (3)
  1. AMOXICILLIN [Suspect]
     Active Substance: AMOXICILLIN
     Indication: Helicobacter infection
     Dosage: UNIT DOSE :  1 GRAM, FREQUENCY TIME : 1 DAY ,   DURATION : 8 DAYS
     Route: 065
     Dates: start: 20220712, end: 20220720
  2. CLARITHROMYCIN [Suspect]
     Active Substance: CLARITHROMYCIN
     Indication: Helicobacter infection
     Dosage: UNIT DOSE :  1500 MG, FREQUENCY TIME : 1 DAY,   DURATION : 8 DAYS
     Route: 065
     Dates: start: 20220712, end: 20220720
  3. ESOMEPRAZOLE [Suspect]
     Active Substance: ESOMEPRAZOLE
     Indication: Helicobacter infection
     Dosage: UNIT DOSE :  40 MG, FREQUENCY TIME : 1 DAY ,   DURATION : 11 DAYS
     Route: 065
     Dates: start: 20220712, end: 20220723

REACTIONS (3)
  - Urticaria papular [Recovering/Resolving]
  - Oedema peripheral [Recovering/Resolving]
  - Rash erythematous [Recovering/Resolving]

NARRATIVE: CASE EVENT DATE: 20220720
